FAERS Safety Report 4892871-X (Version None)
Quarter: 2006Q1

REPORT INFORMATION
  Report Type: 
  Country: None (occurrence: None)
  Receive Date: 20060126
  Receipt Date: 20051219
  Transmission Date: 20060701
  Serious: Yes (Hospitalization)
  Sender: FDA-Public Use
  Company Number: JP-MERCK-0512USA03720

PATIENT
  Age: 79 Year
  Sex: Male

DRUGS (8)
  1. VITA C [Concomitant]
     Route: 048
     Dates: start: 20051218, end: 20051222
  2. PEPCID [Suspect]
     Indication: GASTRITIS
     Route: 042
     Dates: start: 20051217, end: 20051219
  3. CEFMETAZON [Concomitant]
     Route: 042
     Dates: start: 20051217, end: 20051219
  4. AMINO ACIDS (UNSPECIFIED) AND CARBOHYDRATES (UNSPECIFIED) AND ELECTROL [Concomitant]
     Route: 042
     Dates: start: 20051218, end: 20051223
  5. [THERAPY UNSPECIFIED] [Concomitant]
     Route: 042
     Dates: start: 20051217, end: 20051219
  6. SOLITA T-3 [Concomitant]
     Route: 041
     Dates: start: 20051217, end: 20051217
  7. SOLITA [Concomitant]
     Route: 041
     Dates: start: 20051218, end: 20051222
  8. VITAMEDIN [Concomitant]
     Route: 042
     Dates: start: 20051218, end: 20051222

REACTIONS (2)
  - BLOOD CREATINE PHOSPHOKINASE INCREASED [None]
  - GASTROENTERITIS [None]
